FAERS Safety Report 13868451 (Version 2)
Quarter: 2018Q3

REPORT INFORMATION
  Report Type: Report from Study
  Country: DE (occurrence: DE)
  Receive Date: 20170815
  Receipt Date: 20180803
  Transmission Date: 20181010
  Serious: Yes (Other)
  Sender: FDA-Public Use
  Company Number: DE-ROCHE-1978908

PATIENT
  Age: 71 Year
  Sex: Female
  Weight: 59 kg

DRUGS (11)
  1. RANIBIZUMAB. [Suspect]
     Active Substance: RANIBIZUMAB
     Dosage: 0.5 MG, 1X (VIAL)
     Route: 031
     Dates: start: 20160523
  2. RANIBIZUMAB. [Suspect]
     Active Substance: RANIBIZUMAB
     Dosage: 0.5 MG, 1X (PRE?FILLED SYRINGE)
     Route: 031
     Dates: start: 20170320
  3. RANIBIZUMAB. [Suspect]
     Active Substance: RANIBIZUMAB
     Dosage: 0.5 MG, 1X (PRE?FILLED SYRINGE)
     Route: 031
     Dates: start: 20170612, end: 20170612
  4. RANIBIZUMAB. [Suspect]
     Active Substance: RANIBIZUMAB
     Indication: VISUAL IMPAIRMENT
     Dosage: 0.5 MG, 1X (VIAL)
     Route: 031
     Dates: start: 20160418
  5. RANIBIZUMAB. [Suspect]
     Active Substance: RANIBIZUMAB
     Dosage: 0.5 MG, 1X (VIAL)
     Route: 031
     Dates: start: 20161212
  6. RANIBIZUMAB. [Suspect]
     Active Substance: RANIBIZUMAB
     Dosage: 0.5 MG, 1X (VIAL)
     Route: 031
     Dates: start: 20160704
  7. RANIBIZUMAB. [Suspect]
     Active Substance: RANIBIZUMAB
     Dosage: 0.5 MG, 1X (VIAL)
     Route: 031
     Dates: start: 20160829
  8. RANIBIZUMAB. [Suspect]
     Active Substance: RANIBIZUMAB
     Indication: MACULAR OEDEMA
     Dosage: 0.5 MG, 1X (VIAL)
     Route: 031
     Dates: start: 20160215, end: 20160215
  9. RANIBIZUMAB. [Suspect]
     Active Substance: RANIBIZUMAB
     Dosage: 0.5 MG, 1X (PRE?FILLED SYRINGE)
     Route: 031
     Dates: start: 20170424
  10. RANIBIZUMAB. [Suspect]
     Active Substance: RANIBIZUMAB
     Dosage: 0.5 MG, 1X (VIAL)
     Route: 031
     Dates: start: 20161107
  11. RANIBIZUMAB. [Suspect]
     Active Substance: RANIBIZUMAB
     Indication: RETINAL VEIN OCCLUSION
     Dosage: 0.5 MG, 1X (VIAL)
     Route: 031
     Dates: start: 20160321

REACTIONS (2)
  - Normal tension glaucoma [Unknown]
  - Visual acuity reduced [Recovering/Resolving]

NARRATIVE: CASE EVENT DATE: 20160321
